FAERS Safety Report 19869758 (Version 1)
Quarter: 2021Q3

REPORT INFORMATION
  Report Type: Spontaneous
  Country: IE (occurrence: US)
  Receive Date: 20210922
  Receipt Date: 20210922
  Transmission Date: 20211014
  Serious: Yes (Death, Life-Threatening, Hospitalization, Other)
  Sender: FDA-Public Use
  Company Number: IE-AMGEN-USASP2021144426

PATIENT

DRUGS (2)
  1. THYMOGLOBULIN [Concomitant]
     Active Substance: LAPINE T-LYMPHOCYTE IMMUNE GLOBULIN
  2. FILGRASTIM [Suspect]
     Active Substance: FILGRASTIM
     Indication: HAEMATOPOIETIC STEM CELL MOBILISATION
     Dosage: UNK
     Route: 065

REACTIONS (17)
  - Infection [Fatal]
  - Adenovirus infection [Unknown]
  - Herpes virus infection [Unknown]
  - Interstitial lung disease [Fatal]
  - Delayed engraftment [Unknown]
  - Organ failure [Fatal]
  - Bacterial infection [Unknown]
  - Cytomegalovirus infection [Unknown]
  - Epstein-Barr viraemia [Unknown]
  - Polyomavirus viraemia [Unknown]
  - Fungal infection [Unknown]
  - Graft versus host disease [Fatal]
  - Death [Fatal]
  - Disease recurrence [Fatal]
  - Unevaluable event [Unknown]
  - Respiratory tract infection viral [Unknown]
  - Performance status decreased [Unknown]
